FAERS Safety Report 5685920-2 (Version None)
Quarter: 2008Q1

REPORT INFORMATION
  Report Type: 
  Country: None (occurrence: None)
  Receive Date: 20080328
  Receipt Date: 20080207
  Transmission Date: 20080703
  Serious: No
  Sender: FDA-Public Use
  Company Number: US-BAYER-200813493NA

PATIENT
  Age: 27 Year
  Sex: Female
  Weight: 77 kg

DRUGS (3)
  1. MIRENA [Suspect]
     Indication: CONTRACEPTION
     Route: 015
     Dates: start: 20070801
  2. OXYCODONE HCL [Concomitant]
     Indication: PAIN
  3. NEXIUM [Concomitant]
     Indication: GASTROOESOPHAGEAL REFLUX DISEASE

REACTIONS (2)
  - BACK PAIN [None]
  - VAGINAL HAEMORRHAGE [None]
